FAERS Safety Report 22320252 (Version 1)
Quarter: 2023Q2

REPORT INFORMATION
  Report Type: Report from Study
  Country: GB (occurrence: GB)
  Receive Date: 20230515
  Receipt Date: 20230515
  Transmission Date: 20230722
  Serious: Yes (Hospitalization)
  Sender: FDA-Public Use
  Company Number: GB-SAMSUNG BIOEPIS-SB-2023-09579

PATIENT
  Sex: Male

DRUGS (4)
  1. IMRALDI [Suspect]
     Active Substance: ADALIMUMAB
     Indication: Crohn^s disease
     Dosage: STRENGTH: 40 MG/0.8 ML; AT WEEK ZERO
     Route: 058
     Dates: start: 20230321
  2. IMRALDI [Suspect]
     Active Substance: ADALIMUMAB
     Dosage: STRENGTH: 40 MG/0.8 ML; AT WEEK 2
     Route: 058
  3. IMRALDI [Suspect]
     Active Substance: ADALIMUMAB
     Dosage: STRENGTH: 40 MG/0.8 ML; AT WEEK4
     Route: 058
  4. IMRALDI [Suspect]
     Active Substance: ADALIMUMAB
     Dosage: STRENGTH: 40 MG/0.8 ML;
     Route: 058

REACTIONS (2)
  - Cerebrovascular accident [Unknown]
  - Illness [Unknown]
